FAERS Safety Report 7643628-8 (Version None)
Quarter: 2011Q3

REPORT INFORMATION
  Report Type: 
  Country: None (occurrence: None)
  Receive Date: 20110729
  Receipt Date: 20110726
  Transmission Date: 20111222
  Serious: Yes (Death, Hospitalization)
  Sender: FDA-Public Use
  Company Number: PHHY2011BR67381

PATIENT
  Sex: Female

DRUGS (2)
  1. DIOVAN HCT [Suspect]
     Dosage: HALF TABLET A DAY
     Route: 048
  2. DIOVAN HCT [Suspect]
     Indication: HYPERTENSION
     Dosage: 1 DF, QD
     Route: 048
     Dates: start: 20100501

REACTIONS (7)
  - LYMPHOMA [None]
  - RESPIRATORY ARREST [None]
  - DYSPNOEA [None]
  - RESPIRATORY FAILURE [None]
  - BLOOD PRESSURE FLUCTUATION [None]
  - BLOOD PRESSURE DECREASED [None]
  - WRONG TECHNIQUE IN DRUG USAGE PROCESS [None]
